FAERS Safety Report 7322886-3 (Version None)
Quarter: 2011Q1

REPORT INFORMATION
  Report Type: 
  Country: None (occurrence: None)
  Receive Date: 20110217
  Receipt Date: 20110207
  Transmission Date: 20110831
  Serious: Yes (Hospitalization)
  Sender: FDA-Public Use
  Company Number: 027052

PATIENT
  Sex: Male

DRUGS (1)
  1. LACOSAMIDE [Suspect]
     Dosage: 100 MG BID, ORAL
     Route: 048
     Dates: start: 20101201, end: 20101228

REACTIONS (3)
  - URINARY RETENTION [None]
  - BRADYCARDIA [None]
  - HYPOTHERMIA [None]
